FAERS Safety Report 19872778 (Version 1)
Quarter: 2021Q3

REPORT INFORMATION
  Report Type: Spontaneous
  Country: CA (occurrence: CA)
  Receive Date: 20210922
  Receipt Date: 20210922
  Transmission Date: 20211014
  Serious: Yes (Death)
  Sender: FDA-Public Use
  Company Number: CA-JNJFOC-A-US2020-203312

PATIENT
  Age: 62 Year
  Sex: Male

DRUGS (11)
  1. VITAMIN K [Concomitant]
     Active Substance: PHYTONADIONE
  2. ALLOPURINOL. [Concomitant]
     Active Substance: ALLOPURINOL
  3. IRON [Concomitant]
     Active Substance: IRON
  4. VITAMIN D [Concomitant]
     Active Substance: VITAMIN D NOS
  5. UPTRAVI [Suspect]
     Active Substance: SELEXIPAG
     Indication: PULMONARY ARTERIAL HYPERTENSION
     Dosage: UNK
     Route: 048
  6. TRACLEER [Concomitant]
     Active Substance: BOSENTAN
  7. VITAMIN C [Concomitant]
     Active Substance: ASCORBIC ACID
  8. SILDENAFIL. [Concomitant]
     Active Substance: SILDENAFIL
  9. METOLAZONE. [Concomitant]
     Active Substance: METOLAZONE
  10. UPTRAVI [Suspect]
     Active Substance: SELEXIPAG
     Dosage: 200 MCG
     Route: 048
     Dates: start: 20200323, end: 202003
  11. FUROSEMIDE. [Concomitant]
     Active Substance: FUROSEMIDE

REACTIONS (4)
  - Death [Fatal]
  - Discomfort [Recovered/Resolved]
  - Back pain [Recovered/Resolved]
  - Diarrhoea [Recovered/Resolved]

NARRATIVE: CASE EVENT DATE: 20200323
